FAERS Safety Report 7361317-4 (Version None)
Quarter: 2011Q1

REPORT INFORMATION
  Report Type: 
  Country: None (occurrence: None)
  Receive Date: 20110318
  Receipt Date: 20110310
  Transmission Date: 20110831
  Serious: Yes (Hospitalization)
  Sender: FDA-Public Use
  Company Number: B0677729A

PATIENT
  Sex: Female

DRUGS (10)
  1. NASACORT [Concomitant]
     Indication: ASTHMA
     Dates: start: 20030101
  2. BRICANYL [Concomitant]
     Indication: ASTHMA
     Dates: start: 20020601
  3. SERETIDE DISKUS [Suspect]
     Indication: ASTHMA
     Route: 055
     Dates: start: 20030101
  4. NEXIUM [Concomitant]
     Indication: ASTHMA
     Dosage: 3CAP PER DAY
     Route: 048
     Dates: start: 20060101
  5. INIPOMP [Concomitant]
     Indication: ASTHMA
     Dosage: 40MG TWICE PER DAY
     Route: 065
     Dates: start: 20071101
  6. XOLAIR [Suspect]
     Indication: ASTHMA
     Dosage: 375MG EVERY TWO WEEKS
     Route: 058
     Dates: start: 20071101
  7. SINGULAIR [Suspect]
     Indication: ASTHMA
     Dosage: 10MG PER DAY
     Route: 048
     Dates: start: 20060101
  8. GAVISCON [Concomitant]
     Indication: ASTHMA
     Dates: start: 20030101
  9. MOPRAL [Concomitant]
     Indication: ASTHMA
     Dosage: 40MG PER DAY
     Dates: start: 20030101
  10. PULMICORT [Concomitant]
     Indication: ASTHMA
     Dates: start: 20020601

REACTIONS (1)
  - BREAST CANCER [None]
